FAERS Safety Report 4853037-2 (Version None)
Quarter: 2005Q4

REPORT INFORMATION
  Report Type: 
  Country: None (occurrence: None)
  Receive Date: 20051212
  Receipt Date: 20051122
  Transmission Date: 20060501
  Serious: Yes (Other)
  Sender: FDA-Public Use
  Company Number: US200511002831

PATIENT
  Age: 75 Year
  Sex: Female

DRUGS (4)
  1. FORTEO [Suspect]
     Dates: start: 20041101
  2. EVISTA [Suspect]
     Indication: OSTEOPOROSIS
     Dates: start: 20041101
  3. FORTEO PEN (250MCG/ML) (FORTEO PEN 250MCG/ML (3ML)) PEN, DISPOSABLE [Concomitant]
  4. FOSAMAX          /ITA/(ALENDRONATE SODIUM) [Concomitant]

REACTIONS (2)
  - HYPOTHYROIDISM [None]
  - THYROID MASS [None]
